FAERS Safety Report 6724258-9 (Version None)
Quarter: 2010Q2

REPORT INFORMATION
  Report Type: 
  Country: None (occurrence: None)
  Receive Date: 20100513
  Receipt Date: 20100504
  Transmission Date: 20101027
  Serious: No
  Sender: FDA-Public Use
  Company Number: US-ELI_LILLY_AND_COMPANY-US201003005544

PATIENT
  Age: 72 Year
  Sex: Female

DRUGS (2)
  1. HUMATROPE [Suspect]
     Indication: GROWTH HORMONE DEFICIENCY
     Dosage: 0.3 MG, DAILY (1/D)
     Dates: start: 20091001
  2. HUMATROPE [Suspect]
     Dosage: 0.5 MG, DAILY (1/D)

REACTIONS (4)
  - INJECTION SITE PAIN [None]
  - PAIN [None]
  - PRODUCT QUALITY ISSUE [None]
  - PRODUCT RECONSTITUTION ISSUE [None]
